FAERS Safety Report 8296109-5 (Version None)
Quarter: 2012Q2

REPORT INFORMATION
  Report Type: 
  Country: None (occurrence: None)
  Receive Date: 20120418
  Receipt Date: 20120413
  Transmission Date: 20120825
  Serious: Yes (Death)
  Sender: FDA-Public Use
  Company Number: US-GLAXOSMITHKLINE-A0973613A

PATIENT
  Age: 78 Year
  Sex: Female

DRUGS (5)
  1. HEART MEDICATION [Concomitant]
  2. DIABETES MEDICATION [Concomitant]
  3. VENTOLIN HFA [Suspect]
     Indication: BRONCHOSPASM
     Route: 055
  4. ADVAIR DISKUS 100/50 [Suspect]
     Indication: CHRONIC OBSTRUCTIVE PULMONARY DISEASE
     Dosage: 1PUFF TWICE PER DAY
     Route: 055
     Dates: start: 20070101
  5. VENTOLIN NEBULIZER [Concomitant]

REACTIONS (2)
  - CHRONIC OBSTRUCTIVE PULMONARY DISEASE [None]
  - DIABETES MELLITUS [None]
